FAERS Safety Report 11513915 (Version 1)
Quarter: 2015Q3

REPORT INFORMATION
  Report Type: Spontaneous
  Country: US (occurrence: US)
  Receive Date: 20150903
  Receipt Date: 20150903
  Transmission Date: 20151125
  Serious: No
  Sender: FDA-Public Use
  Company Number: US-ELI_LILLY_AND_COMPANY-US201212002669

PATIENT
  Age: 29 Year
  Sex: Male

DRUGS (1)
  1. CYMBALTA [Suspect]
     Active Substance: DULOXETINE HYDROCHLORIDE
     Indication: GUILLAIN-BARRE SYNDROME
     Dosage: UNK
     Dates: end: 20121128

REACTIONS (4)
  - Off label use [Unknown]
  - Depressed mood [Unknown]
  - Somnolence [Unknown]
  - Feeling abnormal [Unknown]
